FAERS Safety Report 7533003-9 (Version None)
Quarter: 2011Q2

REPORT INFORMATION
  Report Type: 
  Country: None (occurrence: None)
  Receive Date: 20110608
  Receipt Date: 20110517
  Transmission Date: 20111010
  Serious: Yes (Other)
  Sender: FDA-Public Use
  Company Number: US-CELGENEUS-163-21880-11050402

PATIENT
  Sex: Female
  Weight: 83.9 kg

DRUGS (9)
  1. DECADRON [Suspect]
     Indication: MULTIPLE MYELOMA
     Route: 065
  2. ZOMETA [Concomitant]
     Route: 065
  3. MEDROL [Concomitant]
     Route: 065
  4. TRAMADOL HCL [Concomitant]
     Route: 065
  5. PRILOSEC [Concomitant]
     Route: 065
  6. REVLIMID [Suspect]
     Indication: MULTIPLE MYELOMA
     Dosage: 25 MILLIGRAM
     Route: 048
     Dates: start: 20110325
  7. VELCADE [Suspect]
     Indication: MULTIPLE MYELOMA
     Dosage: 2.41 MILLIGRAM
     Route: 051
     Dates: start: 20110221, end: 20110421
  8. DURAGESIC-100 [Concomitant]
     Indication: PAIN
     Route: 065
  9. COMPAZINE [Concomitant]
     Indication: NAUSEA
     Route: 065

REACTIONS (1)
  - UVEITIS [None]
